FAERS Safety Report 8111863-0 (Version None)
Quarter: 2012Q1

REPORT INFORMATION
  Report Type: 
  Country: None (occurrence: None)
  Receive Date: 20120203
  Receipt Date: 20120130
  Transmission Date: 20120608
  Serious: Yes (Hospitalization, Other)
  Sender: FDA-Public Use
  Company Number: US-PFIZER INC-2012026051

PATIENT
  Sex: Female
  Weight: 69.8 kg

DRUGS (7)
  1. SPIRONOLACTONE [Concomitant]
     Dosage: UNK
  2. PAXIL [Suspect]
     Indication: DEPRESSION
     Dosage: UNK
  3. PROPRANOLOL [Concomitant]
     Indication: BLOOD PRESSURE ABNORMAL
     Dosage: 25 MG, DAILY
  4. EFFEXOR XR [Suspect]
     Indication: DEPRESSION
     Dosage: 375 MG, DAILY
     Route: 048
     Dates: end: 20110901
  5. ALTACE [Concomitant]
     Indication: BLOOD PRESSURE ABNORMAL
     Dosage: 5 MG, DAILY
  6. LASIX [Concomitant]
     Dosage: UNK
  7. NEXIUM [Concomitant]
     Dosage: UNK,DAILY

REACTIONS (6)
  - WEIGHT FLUCTUATION [None]
  - PLATELET COUNT DECREASED [None]
  - DRUG INEFFECTIVE [None]
  - PAIN [None]
  - LIVER DISORDER [None]
  - FALL [None]
